FAERS Safety Report 22226013 (Version 1)
Quarter: 2023Q2

REPORT INFORMATION
  Report Type: Report from Study
  Country: NL (occurrence: NL)
  Receive Date: 20230419
  Receipt Date: 20230419
  Transmission Date: 20230722
  Serious: Yes (Other)
  Sender: FDA-Public Use
  Company Number: NL-ABBVIE-4730560

PATIENT
  Sex: Female

DRUGS (25)
  1. HUMIRA [Suspect]
     Active Substance: ADALIMUMAB
     Indication: Vulvitis
     Route: 058
     Dates: start: 2021, end: 2022
  2. HUMIRA [Suspect]
     Active Substance: ADALIMUMAB
     Route: 058
     Dates: start: 2009
  3. HUMIRA [Suspect]
     Active Substance: ADALIMUMAB
     Route: 058
     Dates: start: 2008
  4. TACROLIMUS [Concomitant]
     Active Substance: TACROLIMUS
     Indication: Product used for unknown indication
     Dates: start: 2008
  5. ENTYVIO [Concomitant]
     Active Substance: VEDOLIZUMAB
     Indication: Product used for unknown indication
     Dates: start: 2021
  6. PREDNISONE [Concomitant]
     Active Substance: PREDNISONE
     Indication: Vulvitis
     Dosage: 15 MG
     Dates: start: 2008, end: 2008
  7. PREDNISONE [Concomitant]
     Active Substance: PREDNISONE
     Indication: Vulvitis
     Dates: start: 2020
  8. PREDNISONE [Concomitant]
     Active Substance: PREDNISONE
     Indication: Vulvitis
     Dates: start: 2023
  9. PREDNISONE [Concomitant]
     Active Substance: PREDNISONE
     Indication: Vulvitis
     Dosage: 20 MG
     Dates: start: 2004
  10. INFLIXIMAB [Concomitant]
     Active Substance: INFLIXIMAB
     Indication: Vulvitis
     Dates: start: 2018
  11. INFLIXIMAB [Concomitant]
     Active Substance: INFLIXIMAB
     Indication: Vulvitis
     Dosage: 700 MG
     Dates: start: 2010
  12. INFLIXIMAB [Concomitant]
     Active Substance: INFLIXIMAB
     Indication: Vulvitis
     Dates: start: 2014
  13. CIMZIA [Suspect]
     Active Substance: CERTOLIZUMAB PEGOL
     Indication: Product used for unknown indication
     Dates: start: 201002, end: 201008
  14. ELIDEL [Concomitant]
     Active Substance: PIMECROLIMUS
     Indication: Product used for unknown indication
     Dates: start: 2020
  15. METHOTREXATE SODIUM [Concomitant]
     Active Substance: METHOTREXATE SODIUM
     Indication: Vulvitis
     Dates: start: 2014
  16. METRONIDAZOLE [Concomitant]
     Active Substance: METRONIDAZOLE
     Indication: Product used for unknown indication
     Dates: start: 2004
  17. METRONIDAZOLE [Concomitant]
     Active Substance: METRONIDAZOLE
     Indication: Product used for unknown indication
     Dates: start: 2010
  18. STELARA [Concomitant]
     Active Substance: USTEKINUMAB
     Indication: Product used for unknown indication
     Dates: start: 2020
  19. AZATHIOPRINE [Concomitant]
     Active Substance: AZATHIOPRINE
     Indication: Crohn^s disease
     Dates: start: 2004
  20. BUDESONIDE [Concomitant]
     Active Substance: BUDESONIDE
     Indication: Product used for unknown indication
     Dates: start: 2004
  21. STELARA [Concomitant]
     Active Substance: USTEKINUMAB
     Indication: Skin disorder
     Dates: start: 2020, end: 2021
  22. THIOGUANINE ANHYDROUS [Concomitant]
     Active Substance: THIOGUANINE ANHYDROUS
     Indication: Product used for unknown indication
     Dates: start: 2016
  23. CLOBETASOL [Concomitant]
     Active Substance: CLOBETASOL
     Indication: Vulvitis
     Dates: start: 2014
  24. CLOBETASOL [Concomitant]
     Active Substance: CLOBETASOL
     Indication: Vulvitis
     Dates: start: 2020
  25. CIPROFLOXACIN [Concomitant]
     Active Substance: CIPROFLOXACIN
     Indication: Product used for unknown indication
     Dates: start: 2008

REACTIONS (12)
  - Anal fistula [Unknown]
  - Granulomatous dermatitis [Recovered/Resolved]
  - Therapeutic product effect decreased [Unknown]
  - Skin disorder [Unknown]
  - Vulvitis [Unknown]
  - Orofacial granulomatosis [Unknown]
  - Seborrhoeic dermatitis [Recovering/Resolving]
  - Episcleritis [Unknown]
  - Therapeutic product effect decreased [Unknown]
  - Vulvitis [Unknown]
  - Crohn^s disease [Unknown]
  - Dermatitis atopic [Recovering/Resolving]

NARRATIVE: CASE EVENT DATE: 20080101
